FAERS Safety Report 8025354-9 (Version None)
Quarter: 2012Q1

REPORT INFORMATION
  Report Type: 
  Country: None (occurrence: None)
  Receive Date: 20120105
  Receipt Date: 20111230
  Transmission Date: 20120608
  Serious: Yes (Hospitalization)
  Sender: FDA-Public Use
  Company Number: KR-ELI_LILLY_AND_COMPANY-KR201110004454

PATIENT
  Age: 48 Year
  Sex: Male

DRUGS (2)
  1. HUMALOG MIX 75/25 [Suspect]
     Indication: TYPE 2 DIABETES MELLITUS
     Dosage: 60 U, EACH MORNING
     Route: 058
     Dates: start: 20110701
  2. HUMALOG MIX 75/25 [Suspect]
     Dosage: 30 U, EACH EVENING
     Route: 058
     Dates: start: 20110701

REACTIONS (6)
  - CHEST DISCOMFORT [None]
  - DIABETIC COMPLICATION [None]
  - DIABETES MELLITUS INADEQUATE CONTROL [None]
  - SYNCOPE [None]
  - CHEST PAIN [None]
  - HYPERHIDROSIS [None]
